FAERS Safety Report 8158575-5 (Version None)
Quarter: 2012Q1

REPORT INFORMATION
  Report Type: 
  Country: None (occurrence: None)
  Receive Date: 20120223
  Receipt Date: 20120213
  Transmission Date: 20120608
  Serious: Yes (Other)
  Sender: FDA-Public Use
  Company Number: US-JNJFOC-20120206754

PATIENT
  Age: 72 Year
  Sex: Female
  Weight: 63.5 kg

DRUGS (5)
  1. DITROPAN [Concomitant]
     Indication: BLADDER DISORDER
     Route: 048
     Dates: start: 20080101
  2. ATENOLOL [Concomitant]
     Indication: BLOOD PRESSURE
     Route: 048
  3. REMICADE [Suspect]
     Indication: RHEUMATOID ARTHRITIS
     Route: 042
     Dates: start: 20090101, end: 20110101
  4. SIMVASTATIN [Concomitant]
     Indication: BLOOD CHOLESTEROL
     Route: 048
  5. TRAMADOL HCL [Concomitant]
     Indication: BACK PAIN
     Route: 048
     Dates: start: 20090101

REACTIONS (3)
  - SQUAMOUS CELL CARCINOMA [None]
  - HEAD AND NECK CANCER [None]
  - MASS [None]
